FAERS Safety Report 17712070 (Version 1)
Quarter: 2020Q2

REPORT INFORMATION
  Report Type: Spontaneous
  Country: US (occurrence: US)
  Receive Date: 20200427
  Receipt Date: 20200427
  Transmission Date: 20200714
  Serious: No
  Sender: FDA-Public Use
  Company Number: US-FDC LIMITED-2019RIS00511

PATIENT
  Sex: Female
  Weight: 54.42 kg

DRUGS (3)
  1. UNSPECIFIED BLOOD PRESSURE/HEART MEDICATION [Concomitant]
     Dosage: UNK, 1X/DAY
  2. VITAMINS [Concomitant]
     Active Substance: VITAMINS
     Dosage: UNK, 2X/DAY
  3. LATANOPROST. [Suspect]
     Active Substance: LATANOPROST
     Indication: MACULAR DEGENERATION
     Dosage: 1 DROP, 1X/DAY NIGHTLY ^PER EYE^
     Route: 031

REACTIONS (3)
  - Eye discharge [Not Recovered/Not Resolved]
  - Off label use [Not Recovered/Not Resolved]
  - Drug hypersensitivity [Not Recovered/Not Resolved]
